FAERS Safety Report 13509000 (Version 1)
Quarter: 2017Q2

REPORT INFORMATION
  Report Type: Report from Study
  Country: AR (occurrence: AR)
  Receive Date: 20170503
  Receipt Date: 20170503
  Transmission Date: 20170830
  Serious: Yes (Other)
  Sender: FDA-Public Use
  Company Number: AR-ALEXION PHARMACEUTICALS INC.-A201611952

PATIENT
  Age: 23 Year
  Sex: Female

DRUGS (1)
  1. SOLIRIS [Suspect]
     Active Substance: ECULIZUMAB
     Indication: PAROXYSMAL NOCTURNAL HAEMOGLOBINURIA
     Dosage: UNK
     Route: 065
     Dates: start: 20140824

REACTIONS (10)
  - Normochromic normocytic anaemia [Unknown]
  - Leukopenia [Unknown]
  - Blood smear test abnormal [Unknown]
  - Acute kidney injury [Unknown]
  - Abdominal pain [Unknown]
  - Urine analysis abnormal [Unknown]
  - Blood lactate dehydrogenase [Unknown]
  - Infection [Unknown]
  - Adverse event [Unknown]
  - Pyrexia [Unknown]
